FAERS Safety Report 4716451-1 (Version None)
Quarter: 2005Q3

REPORT INFORMATION
  Report Type: 
  Country: None (occurrence: None)
  Receive Date: 20050714
  Receipt Date: 20050705
  Transmission Date: 20060218
  Serious: Yes (Other)
  Sender: FDA-Public Use
  Company Number: 2005-07-0075

PATIENT
  Age: 28 Year
  Sex: Male
  Weight: 94 kg

DRUGS (2)
  1. LORATADINE [Suspect]
     Indication: SEASONAL ALLERGY
     Dosage: 10 MG QD ORAL
     Route: 048
     Dates: start: 20050607
  2. NUROFEN TABLETS [Suspect]
     Indication: HEADACHE
     Dosage: 2 QD ORAL
     Route: 048
     Dates: start: 20050618, end: 20050620

REACTIONS (4)
  - DYSPNOEA [None]
  - EYE SWELLING [None]
  - HEADACHE [None]
  - SWELLING FACE [None]
